FAERS Safety Report 7071830-5 (Version None)
Quarter: 2010Q4

REPORT INFORMATION
  Report Type: 
  Country: None (occurrence: None)
  Receive Date: 20101029
  Receipt Date: 20091027
  Transmission Date: 20110411
  Serious: No
  Sender: FDA-Public Use
  Company Number: A0813605A

PATIENT
  Age: 67 Year
  Sex: Male

DRUGS (10)
  1. ADVAIR DISKUS 100/50 [Suspect]
     Indication: ASTHMA
     Dosage: 1PUFF TWICE PER DAY
     Route: 055
  2. LIPITOR [Concomitant]
  3. ZETIA [Concomitant]
  4. ATENOLOL [Concomitant]
  5. LORAZEPAM [Concomitant]
  6. VENLAFAXINE [Concomitant]
  7. PLAVIX [Concomitant]
  8. NEXIUM [Concomitant]
  9. ASPIRIN [Concomitant]
  10. MULTI-VITAMIN [Concomitant]

REACTIONS (1)
  - CANDIDIASIS [None]
